FAERS Safety Report 19608193 (Version 1)
Quarter: 2021Q3

REPORT INFORMATION
  Report Type: Spontaneous
  Country: US (occurrence: US)
  Receive Date: 20210721
  Receipt Date: 20210721
  Transmission Date: 20211014
  Serious: No
  Sender: FDA-Public Use
  Company Number: None

PATIENT
  Sex: Female
  Weight: 61.23 kg

DRUGS (18)
  1. ELDERBERRY [Concomitant]
     Active Substance: HERBALS
  2. BIOTIN [Concomitant]
     Active Substance: BIOTIN
  3. VITAMIN C [Concomitant]
     Active Substance: ASCORBIC ACID
  4. COENZYME Q10 [Concomitant]
     Active Substance: DIETARY SUPPLEMENT\UBIDECARENONE
  5. TUMERIC [Concomitant]
     Active Substance: HERBALS\TURMERIC
  6. CALCIUM [Concomitant]
     Active Substance: CALCIUM
  7. COLLAGEN [Concomitant]
     Active Substance: COLLAGEN
  8. VARITHENA [Suspect]
     Active Substance: POLIDOCANOL
     Indication: PROPHYLAXIS
     Dates: start: 20210309, end: 20210323
  9. ZYPAN [Concomitant]
  10. MELATONIN [Concomitant]
     Active Substance: MELATONIN
  11. MAGNESIUM [Concomitant]
     Active Substance: MAGNESIUM
  12. LUTEIN [Concomitant]
     Active Substance: LUTEIN
  13. VIT B [Concomitant]
     Active Substance: VITAMIN B
  14. ENZYMES [Concomitant]
  15. LUNG + BRONCHIAL [Concomitant]
  16. PROBIOTICS [Concomitant]
     Active Substance: PROBIOTICS NOS
  17. ECHINACEA [Concomitant]
     Active Substance: ECHINACEA, UNSPECIFIED
  18. HEALTHY FEET + NERVES [Concomitant]

REACTIONS (3)
  - Spider vein [None]
  - Contusion [None]
  - Pain in extremity [None]
